FAERS Safety Report 18972957 (Version 1)
Quarter: 2021Q1

REPORT INFORMATION
  Report Type: Spontaneous
  Country: US (occurrence: US)
  Receive Date: 20210305
  Receipt Date: 20210305
  Transmission Date: 20210420
  Serious: Yes (Hospitalization)
  Sender: FDA-Public Use
  Company Number: None

PATIENT
  Sex: Female

DRUGS (33)
  1. ATROPINE OP [Concomitant]
  2. MULTIPLE VIT [Concomitant]
  3. NYSTATIN CRE [Concomitant]
  4. SODIUM CHLOR SOL 0.9% IRR [Concomitant]
  5. ALBUTEROL AER [Concomitant]
     Active Substance: ALBUTEROL
  6. ALBUTEROL NEB [Concomitant]
     Active Substance: ALBUTEROL
  7. FIASP [Concomitant]
     Active Substance: INSULIN ASPART
  8. MELATONIN [Concomitant]
     Active Substance: MELATONIN
  9. MOMETASONE [Concomitant]
     Active Substance: MOMETASONE
  10. BACLOFEN. [Concomitant]
     Active Substance: BACLOFEN
  11. CIPRODEX [Concomitant]
     Active Substance: CIPROFLOXACIN HYDROCHLORIDE\DEXAMETHASONE
  12. EPIDIOLEX [Concomitant]
     Active Substance: CANNABIDIOL
  13. CLONIDINE. [Concomitant]
     Active Substance: CLONIDINE
  14. DULCOLAX NOS [Concomitant]
     Active Substance: BISACODYL OR DOCUSATE SODIUM
  15. NURTEC ODT [Concomitant]
     Active Substance: RIMEGEPANT SULFATE
  16. ONFI [Concomitant]
     Active Substance: CLOBAZAM
  17. SENNA [Concomitant]
     Active Substance: SENNA LEAF\SENNOSIDES\SENNOSIDES A AND B
  18. TRAZODONE [Concomitant]
     Active Substance: TRAZODONE HYDROCHLORIDE
  19. ACIDOPHILUS [Concomitant]
     Active Substance: LACTOBACILLUS ACIDOPHILUS
  20. BACTROBAN [Concomitant]
     Active Substance: MUPIROCIN\MUPIROCIN CALCIUM
  21. CYPROHEPT AD [Concomitant]
  22. GABAPENTIN. [Concomitant]
     Active Substance: GABAPENTIN
  23. MIRALAX [Concomitant]
     Active Substance: POLYETHYLENE GLYCOL 3350
  24. PATADAY [Concomitant]
     Active Substance: OLOPATADINE HYDROCHLORIDE
  25. ATIVAN [Concomitant]
     Active Substance: LORAZEPAM
  26. LAMICTAL [Concomitant]
     Active Substance: LAMOTRIGINE
  27. LANTUS SOLOS [Concomitant]
  28. PREVACID [Concomitant]
     Active Substance: LANSOPRAZOLE
  29. SOD CHL 0.9% NEB [Concomitant]
  30. VITAMIN D [Concomitant]
     Active Substance: VITAMIN D NOS
  31. DIASTAT ACDL GEL [Concomitant]
  32. ROBINUL [Concomitant]
     Active Substance: GLYCOPYRROLATE
  33. TOBRAMYCIN 40MG/ML MDV 2ML [Suspect]
     Active Substance: TOBRAMYCIN
     Indication: LUNG DISORDER
     Dosage: 1 VIAL BID INH ? 14 D ON ? 14 D OFF
     Route: 055
     Dates: start: 20170129

REACTIONS (1)
  - Pneumonia [None]
